FAERS Safety Report 10435778 (Version 2)
Quarter: 2014Q3

REPORT INFORMATION
  Report Type: Spontaneous
  Country: US (occurrence: FR)
  Receive Date: 20140908
  Receipt Date: 20140919
  Transmission Date: 20150326
  Serious: Yes (Hospitalization)
  Sender: FDA-Public Use
  Company Number: 2014SP005091

PATIENT
  Age: 69 Year
  Sex: Male

DRUGS (5)
  1. SOLU-MEDROL [Suspect]
     Active Substance: METHYLPREDNISOLONE SODIUM SUCCINATE
     Indication: BLADDER NEOPLASM
  2. METHOTREXATE [Suspect]
     Active Substance: METHOTREXATE
     Indication: BLADDER NEOPLASM
     Route: 042
     Dates: start: 20140618, end: 20140730
  3. VELBE [Suspect]
     Active Substance: VINBLASTINE SULFATE
     Indication: BLADDER NEOPLASM
     Route: 042
     Dates: start: 20140618, end: 20140730
  4. DOXORUBICIN [Suspect]
     Active Substance: DOXORUBICIN
     Indication: BLADDER NEOPLASM
     Dates: start: 20140618, end: 20140730
  5. CISPLATIN. [Suspect]
     Active Substance: CISPLATIN
     Indication: BLADDER NEOPLASM

REACTIONS (2)
  - Vomiting [Recovering/Resolving]
  - Hypokalaemia [Recovering/Resolving]

NARRATIVE: CASE EVENT DATE: 201408
